FAERS Safety Report 10512298 (Version 1)
Quarter: 2014Q4

REPORT INFORMATION
  Report Type: Spontaneous
  Country: CA (occurrence: CA)
  Receive Date: 20141010
  Receipt Date: 20141010
  Transmission Date: 20150528
  Serious: Yes (Other)
  Sender: FDA-Public Use
  Company Number: CA-BAXTER-2014BAX059555

PATIENT

DRUGS (1)
  1. PRISM0CAL [Suspect]
     Active Substance: CARBONATE ION\LACTIC ACID\MAGNESIUM CATION\SODIUM CHLORIDE
     Indication: HAEMODIALYSIS
     Route: 010

REACTIONS (2)
  - Haemorrhage [Unknown]
  - Product container seal issue [Recovered/Resolved]

NARRATIVE: CASE EVENT DATE: 20140930
